FAERS Safety Report 23989434 (Version 2)
Quarter: 2024Q3

REPORT INFORMATION
  Report Type: Report from Study
  Country: IT (occurrence: IT)
  Receive Date: 20240619
  Receipt Date: 20240709
  Transmission Date: 20241017
  Serious: Yes (Hospitalization, Other)
  Sender: SERVIER
  Company Number: IT-SERVIER-S24007143

PATIENT

DRUGS (6)
  1. PEGASPARGASE [Suspect]
     Active Substance: PEGASPARGASE
     Indication: B precursor type acute leukaemia
     Dosage: 2800 IU, EVERY 2 WEEKS
     Route: 042
     Dates: start: 20211228, end: 20220111
  2. METHOTREXATE SODIUM [Suspect]
     Active Substance: METHOTREXATE SODIUM
     Indication: B precursor type acute leukaemia
     Dosage: 12 MG, ON D1, D24, D35
     Route: 037
     Dates: start: 20211206, end: 20220109
  3. PREDNISONE [Suspect]
     Active Substance: PREDNISONE
     Indication: B precursor type acute leukaemia
     Dosage: 62.5 MG, QD
     Route: 048
     Dates: start: 20211217, end: 20220114
  4. VINCRISTINE [Suspect]
     Active Substance: VINCRISTINE
     Indication: B precursor type acute leukaemia
     Dosage: 1.68 MG, ON D1, D8, D15, D22
     Route: 065
     Dates: start: 20211224, end: 20220114
  5. DAUNORUBICIN [Suspect]
     Active Substance: DAUNORUBICIN
     Indication: Product used for unknown indication
     Dosage: 33.6 MG, ON D1, D8, D15, D22
     Route: 065
     Dates: start: 20211224, end: 20220114
  6. HEPARIN [Concomitant]
     Active Substance: HEPARIN SODIUM
     Indication: Cerebral venous thrombosis
     Dosage: UNK
     Route: 065
     Dates: start: 202112

REACTIONS (9)
  - Pleural effusion [Recovered/Resolved]
  - Pericardial effusion [Recovered/Resolved]
  - Myocardial injury [Recovered/Resolved]
  - Peripancreatic fluid collection [Recovered/Resolved]
  - Pancreatitis acute [Recovered/Resolved]
  - Coagulopathy [Recovered/Resolved]
  - Splenic vein thrombosis [Recovered/Resolved]
  - Ascites [Recovered/Resolved]
  - Septic shock [Recovered/Resolved]

NARRATIVE: CASE EVENT DATE: 20220204
